FAERS Safety Report 14045259 (Version 2)
Quarter: 2017Q4

REPORT INFORMATION
  Report Type: Spontaneous
  Country: PL (occurrence: PL)
  Receive Date: 20171005
  Receipt Date: 20171020
  Transmission Date: 20180321
  Serious: Yes (Hospitalization, Other)
  Sender: FDA-Public Use
  Company Number: PL-BIOGEN-2017BI00466478

PATIENT
  Age: 48 Year
  Sex: Female

DRUGS (2)
  1. OLFEN 75 SR [Concomitant]
     Indication: SPINAL PAIN
     Route: 065
     Dates: start: 201706, end: 201706
  2. AVONEX [Suspect]
     Active Substance: INTERFERON BETA-1A
     Indication: PRODUCT USED FOR UNKNOWN INDICATION
     Route: 030
     Dates: start: 20150831, end: 201709

REACTIONS (5)
  - Breast cancer stage IV [Not Recovered/Not Resolved]
  - Headache [Unknown]
  - Lung cancer metastatic [Unknown]
  - Hypotonia [Unknown]
  - Hemianaesthesia [Unknown]

NARRATIVE: CASE EVENT DATE: 20170912
